FAERS Safety Report 22249554 (Version 1)
Quarter: 2023Q2

REPORT INFORMATION
  Report Type: Spontaneous
  Country: US (occurrence: None)
  Receive Date: 20230421
  Receipt Date: 20230421
  Transmission Date: 20230721
  Serious: Yes (Other)
  Sender: FDA-Public Use
  Company Number: None

PATIENT
  Age: 64 Year
  Sex: Female

DRUGS (15)
  1. OPSUMIT [Suspect]
     Active Substance: MACITENTAN
     Indication: Pulmonary hypertension
     Dosage: FREQUENCY : DAILY;?
     Route: 048
     Dates: start: 20230207, end: 20230414
  2. TADALAFIL [Concomitant]
     Active Substance: TADALAFIL
  3. WARFARIN [Concomitant]
  4. TRAZODONE [Concomitant]
  5. XARELTO [Concomitant]
  6. NIFEDIPINE [Concomitant]
  7. TORSEMIDE [Concomitant]
     Active Substance: TORSEMIDE
  8. FAMOTIDINE [Concomitant]
  9. POTASSIUM CHLORIDE [Concomitant]
     Active Substance: POTASSIUM CHLORIDE
  10. spirononactone [Concomitant]
  11. ATORVASTATIN [Concomitant]
  12. LEVOTHYROXINE [Concomitant]
  13. MIRALAX [Concomitant]
     Active Substance: POLYETHYLENE GLYCOL 3350
  14. ATROVENT HFA [Concomitant]
     Active Substance: IPRATROPIUM BROMIDE
  15. WIXELA INHUB [Concomitant]
     Active Substance: FLUTICASONE PROPIONATE\SALMETEROL XINAFOATE

REACTIONS (2)
  - Pneumonia [None]
  - Viral upper respiratory tract infection [None]

NARRATIVE: CASE EVENT DATE: 20230414
